FAERS Safety Report 23084098 (Version 2)
Quarter: 2023Q4

REPORT INFORMATION
  Report Type: Spontaneous
  Country: US (occurrence: US)
  Receive Date: 20231019
  Receipt Date: 20231031
  Transmission Date: 20240110
  Serious: Yes (Other)
  Sender: FDA-Public Use
  Company Number: US-TEVA-2023-US-2935236

PATIENT
  Age: 64 Year
  Sex: Female

DRUGS (4)
  1. PACLITAXEL [Suspect]
     Active Substance: PACLITAXEL
     Indication: Endometrial cancer stage I
     Route: 065
  2. LENVATINIB [Suspect]
     Active Substance: LENVATINIB
     Indication: Endometrial cancer stage I
     Route: 065
  3. TRASTUZUMAB [Suspect]
     Active Substance: TRASTUZUMAB
     Indication: Endometrial cancer stage I
     Route: 065
  4. PEMBROLIZUMAB [Suspect]
     Active Substance: PEMBROLIZUMAB
     Indication: Endometrial cancer stage I
     Route: 065

REACTIONS (4)
  - Gastrointestinal haemorrhage [Unknown]
  - Intentional product misuse [Unknown]
  - Rebound effect [Unknown]
  - Drug ineffective [Unknown]
